FAERS Safety Report 9204250 (Version 1)
Quarter: 2013Q2

REPORT INFORMATION
  Report Type: Spontaneous
  Country: US (occurrence: US)
  Receive Date: 20130402
  Receipt Date: 20130402
  Transmission Date: 20140414
  Serious: Yes (Hospitalization)
  Sender: FDA-Public Use
  Company Number: US-ELI_LILLY_AND_COMPANY-US201303008400

PATIENT
  Sex: Female

DRUGS (2)
  1. FORTEO [Suspect]
     Indication: OSTEONECROSIS
     Dosage: UNK
  2. FORTEO [Suspect]
     Dosage: UNK

REACTIONS (6)
  - Osteonecrosis [Unknown]
  - Arthropathy [Unknown]
  - Hypersensitivity [Unknown]
  - Sneezing [Unknown]
  - Malaise [Unknown]
  - Off label use [Unknown]
